FAERS Safety Report 18947732 (Version 2)
Quarter: 2021Q1

REPORT INFORMATION
  Report Type: Report from Study
  Country: None (occurrence: US)
  Receive Date: 20210227
  Receipt Date: 20210302
  Transmission Date: 20210420
  Serious: Yes (Death, Hospitalization, Other)
  Sender: FDA-Public Use
  Company Number: US-ABBVIE-21K-163-3786429-00

PATIENT
  Age: 72 Year
  Sex: Male

DRUGS (1)
  1. HUMIRA [Suspect]
     Active Substance: ADALIMUMAB
     Indication: ANKYLOSING SPONDYLITIS
     Dosage: CF
     Route: 058
     Dates: start: 20210109, end: 20210220

REACTIONS (4)
  - Malaise [Unknown]
  - Altered state of consciousness [Unknown]
  - Urinary tract infection [Fatal]
  - Asthenia [Unknown]

NARRATIVE: CASE EVENT DATE: 20210220
